FAERS Safety Report 10161877 (Version 1)
Quarter: 2014Q2

REPORT INFORMATION
  Report Type: Spontaneous
  Country: US (occurrence: US)
  Receive Date: 20140509
  Receipt Date: 20140509
  Transmission Date: 20141212
  Serious: No
  Sender: FDA-Public Use
  Company Number: US-US-EMD SERONO, INC.-7288861

PATIENT
  Age: 56 Year
  Sex: Female

DRUGS (1)
  1. REBIF [Suspect]
     Indication: MULTIPLE SCLEROSIS
     Route: 058
     Dates: start: 20060428

REACTIONS (6)
  - Palpitations [Unknown]
  - Flushing [Unknown]
  - Drug hypersensitivity [Recovered/Resolved]
  - Influenza like illness [Recovering/Resolving]
  - Hyperhidrosis [Recovering/Resolving]
  - Rash erythematous [Unknown]
